FAERS Safety Report 20368905 (Version 2)
Quarter: 2022Q2

REPORT INFORMATION
  Report Type: Spontaneous
  Country: US (occurrence: US)
  Receive Date: 20220124
  Receipt Date: 20220418
  Transmission Date: 20220721
  Serious: No
  Sender: FDA-Public Use
  Company Number: US-NOVARTISTESTPH-NVSC2022US013912

PATIENT
  Sex: Female

DRUGS (1)
  1. VOTRIENT [Suspect]
     Active Substance: PAZOPANIB HYDROCHLORIDE
     Indication: Hereditary haemorrhagic telangiectasia
     Dosage: 100 MG, QD
     Route: 048
     Dates: start: 20211119

REACTIONS (2)
  - Pruritus [Unknown]
  - Alopecia [Unknown]
